FAERS Safety Report 8602385-9 (Version None)
Quarter: 2012Q3

REPORT INFORMATION
  Report Type: 
  Country: None (occurrence: None)
  Receive Date: 20120817
  Receipt Date: 20120814
  Transmission Date: 20120928
  Serious: Yes (Hospitalization)
  Sender: FDA-Public Use
  Company Number: DE-ROCHE-1085427

PATIENT
  Sex: Female
  Weight: 91 kg

DRUGS (7)
  1. PLACEBO [Suspect]
     Indication: BREAST CANCER
     Dosage: LOADING DOSE AS PER PROTOCOL
     Route: 042
     Dates: start: 20120601, end: 20120601
  2. CARBOPLATIN [Suspect]
     Indication: BREAST CANCER
     Dosage: LAST DOSE PRIOR TO 2ND EPISODE: 13/JUL/2012
     Route: 042
     Dates: start: 20120601
  3. OMEPRAZOLE [Concomitant]
     Dates: start: 20120702
  4. PLACEBO [Suspect]
     Dosage: ESTIMATED START DATE OF MAINTENANCE DOSE. LAST DOSE PRIOR TO 1ST EPISODE: 22/JUN/2012, LAST DOSE PRI
     Route: 042
     Dates: start: 20120622
  5. HERCEPTIN [Suspect]
     Indication: BREAST CANCER
     Dosage: LOADING DOSE AS PER PROTOCOL, LAST DOSE PRIOR TO SAE : 13/JUL/2012
     Route: 042
     Dates: start: 20120601, end: 20120601
  6. VITAMIN B COMPLEX CAP [Concomitant]
     Dates: start: 20120702
  7. HERCEPTIN [Suspect]
     Dosage: ESTIMATED START DATE OF MAINTENANCE DOSE. LAST DOSE PRIOR TO 1ST EPISODE: 22/JUN/2012, LAST DOSE PRI
     Route: 042
     Dates: start: 20120622

REACTIONS (2)
  - GENERAL PHYSICAL HEALTH DETERIORATION [None]
  - PYREXIA [None]
